FAERS Safety Report 4659209-4 (Version None)
Quarter: 2005Q2

REPORT INFORMATION
  Report Type: 
  Country: None (occurrence: None)
  Receive Date: 20050511
  Receipt Date: 20050412
  Transmission Date: 20051028
  Serious: Yes (Other)
  Sender: FDA-Public Use
  Company Number: US-AMGEN-US126251

PATIENT
  Sex: Female
  Weight: 84 kg

DRUGS (4)
  1. ENBREL [Suspect]
     Indication: RHEUMATOID ARTHRITIS
     Dates: start: 20041101, end: 20050401
  2. ESTROGEN NOS [Concomitant]
     Route: 062
  3. ZYRTEC [Concomitant]
  4. ZANTAC [Concomitant]

REACTIONS (1)
  - PSEUDOPAPILLOEDEMA [None]
